FAERS Safety Report 7519323-2 (Version None)
Quarter: 2011Q2

REPORT INFORMATION
  Report Type: 
  Country: None (occurrence: None)
  Receive Date: 20110523
  Receipt Date: 20110511
  Transmission Date: 20111010
  Serious: Yes (Hospitalization)
  Sender: FDA-Public Use
  Company Number: 901312

PATIENT
  Age: 71 Year
  Sex: Male
  Weight: 73 kg

DRUGS (2)
  1. AZITHROMYC [Suspect]
     Indication: ANTIBIOTIC THERAPY
     Dosage: 500 MG, DAILY, IVPB, OTHER
     Route: 050
     Dates: start: 20110423, end: 20110427
  2. SODIUM CHLORIDE 0.9% [Suspect]
     Dosage: IVPB, OTHER
     Route: 050
     Dates: start: 20110423, end: 20110427

REACTIONS (2)
  - RASH PRURITIC [None]
  - RESPIRATORY DISTRESS [None]
